FAERS Safety Report 7957500-7 (Version None)
Quarter: 2011Q4

REPORT INFORMATION
  Report Type: 
  Country: None (occurrence: None)
  Receive Date: 20111205
  Receipt Date: 20111122
  Transmission Date: 20120403
  Serious: Yes (Hospitalization)
  Sender: FDA-Public Use
  Company Number: US-GLAXOSMITHKLINE-A0915691A

PATIENT
  Age: 68 Year
  Sex: Female
  Weight: 78.2 kg

DRUGS (1)
  1. AVANDIA [Suspect]
     Indication: DIABETES MELLITUS
     Route: 048
     Dates: start: 20020801, end: 20080213

REACTIONS (5)
  - STENT PLACEMENT [None]
  - ELECTROCARDIOGRAM ABNORMAL [None]
  - MACULAR OEDEMA [None]
  - CORONARY ARTERY BYPASS [None]
  - CARDIAC FAILURE CONGESTIVE [None]
